FAERS Safety Report 14692784 (Version 4)
Quarter: 2018Q2

REPORT INFORMATION
  Report Type: Spontaneous
  Country: JP (occurrence: JP)
  Receive Date: 20180329
  Receipt Date: 20180518
  Transmission Date: 20180711
  Serious: Yes (Disabling, Other)
  Sender: FDA-Public Use
  Company Number: JP-009507513-1803JPN002974J

PATIENT
  Age: 66 Year
  Sex: Female
  Weight: 43 kg

DRUGS (6)
  1. MUCOSTA [Concomitant]
     Active Substance: REBAMIPIDE
     Indication: GASTRIC ULCER
     Dosage: 100 MG, BID
     Route: 048
  2. RHYTHMY [Concomitant]
     Active Substance: RILMAZAFONE HYDROCHLORIDE
     Indication: INSOMNIA
     Dosage: 1 MG, UNK
     Route: 048
     Dates: start: 2017, end: 20180314
  3. BELSOMRA [Suspect]
     Active Substance: SUVOREXANT
     Indication: INSOMNIA
     Dosage: 15 MG, QD
     Route: 048
     Dates: start: 20180314, end: 20180314
  4. CELECOX [Concomitant]
     Active Substance: CELECOXIB
     Indication: ANTIINFLAMMATORY THERAPY
     Dosage: 100 MG, BID
     Route: 048
  5. PYRETHIA [Concomitant]
     Active Substance: PROMETHAZINE HYDROCHLORIDE
     Indication: PARKINSON^S DISEASE
     Dosage: 25 MG, 6 TIMES PER DAY
     Route: 048
     Dates: start: 20040617, end: 20180411
  6. NEULEPTIL [Concomitant]
     Active Substance: PERICIAZINE
     Indication: INSOMNIA
     Dosage: 5 MG, 6 TIMES PER DAY
     Route: 048
     Dates: start: 20090617, end: 20180411

REACTIONS (2)
  - Eye swelling [Not Recovered/Not Resolved]
  - Headache [Recovered/Resolved]

NARRATIVE: CASE EVENT DATE: 20180314
